FAERS Safety Report 5166587-9 (Version None)
Quarter: 2006Q4

REPORT INFORMATION
  Report Type: 
  Country: None (occurrence: None)
  Receive Date: 20061207
  Receipt Date: 20061122
  Transmission Date: 20070319
  Serious: Yes (Hospitalization)
  Sender: FDA-Public Use
  Company Number: US-AMGEN-US201847

PATIENT
  Sex: Female
  Weight: 49.5 kg

DRUGS (6)
  1. PROCRIT [Suspect]
     Indication: ANAEMIA
     Route: 058
     Dates: start: 20040101, end: 20060901
  2. HYDRALAZINE HYDROCHLORIDE [Concomitant]
  3. FUROSEMIDE [Concomitant]
  4. NORVASC [Concomitant]
  5. ISOSORBIDE [Concomitant]
  6. ZOCOR [Concomitant]

REACTIONS (4)
  - BLOOD GLUCOSE INCREASED [None]
  - DYSPNOEA [None]
  - JOINT SWELLING [None]
  - OEDEMA PERIPHERAL [None]
